FAERS Safety Report 13149689 (Version 2)
Quarter: 2017Q3

REPORT INFORMATION
  Report Type: Spontaneous
  Country: TR (occurrence: TR)
  Receive Date: 20170125
  Receipt Date: 20170913
  Transmission Date: 20171127
  Serious: Yes (Other)
  Sender: FDA-Public Use
  Company Number: TR-ASTRAZENECA-2017SE04717

PATIENT
  Age: 50 Year
  Sex: Female

DRUGS (4)
  1. BASAL INSULIN [Concomitant]
  2. METFORMIN [Concomitant]
     Active Substance: METFORMIN HYDROCHLORIDE
  3. FORZIGA [Suspect]
     Active Substance: DAPAGLIFLOZIN
     Route: 048
  4. BYETTA [Suspect]
     Active Substance: EXENATIDE
     Route: 065

REACTIONS (1)
  - Acute kidney injury [Unknown]
